FAERS Safety Report 10607212 (Version 2)
Quarter: 2014Q4

REPORT INFORMATION
  Report Type: Spontaneous
  Country: NO (occurrence: NO)
  Receive Date: 20141125
  Receipt Date: 20141223
  Transmission Date: 20150529
  Serious: Yes (Other)
  Sender: FDA-Public Use
  Company Number: NO-INCYTE CORPORATION-2014IN003520

PATIENT
  Sex: Male

DRUGS (1)
  1. JAKAFI [Suspect]
     Active Substance: RUXOLITINIB
     Indication: MYELOFIBROSIS
     Dosage: UNK UKN, UNK
     Route: 065
     Dates: start: 2013

REACTIONS (2)
  - Terminal state [Unknown]
  - Acute myeloid leukaemia [Unknown]
